FAERS Safety Report 10058582 (Version 1)
Quarter: 2014Q2

REPORT INFORMATION
  Report Type: Spontaneous
  Country: IN (occurrence: IN)
  Receive Date: 20140404
  Receipt Date: 20140404
  Transmission Date: 20141212
  Serious: Yes (Hospitalization)
  Sender: FDA-Public Use
  Company Number: IN-NOVOPROD-404732

PATIENT
  Age: 51 Year
  Sex: Female

DRUGS (6)
  1. NOVOMIX 30 [Suspect]
     Indication: TYPE 2 DIABETES MELLITUS
     Dosage: 25 U, QD (15 UNITS IN MORNING AND 10 UNITS IN EVENING)
     Route: 065
  2. VICTOZA [Suspect]
     Indication: TYPE 2 DIABETES MELLITUS
     Dosage: 0.6 MG, QD (FOR 1 WEEK)
     Route: 058
  3. VICTOZA [Suspect]
     Indication: WEIGHT CONTROL
     Dosage: 1.2 MG, QD
     Route: 058
  4. GLICLAZIDE [Concomitant]
     Indication: TYPE 2 DIABETES MELLITUS
     Dosage: 80 MG, BID
  5. ASPIRIN [Concomitant]
     Dosage: 150 MG, QD
  6. PRAZOSIN [Concomitant]
     Dosage: 5 MG, BID

REACTIONS (2)
  - Pancreatitis acute [Recovered/Resolved]
  - Blood glucose fluctuation [Recovered/Resolved]
